FAERS Safety Report 24766828 (Version 2)
Quarter: 2025Q1

REPORT INFORMATION
  Report Type: Spontaneous
  Country: JP (occurrence: JP)
  Receive Date: 20241223
  Receipt Date: 20250320
  Transmission Date: 20250409
  Serious: Yes (Hospitalization, Disabling)
  Sender: DAIICHI
  Company Number: JP-DSJP-DS-2024-113756-JP

PATIENT
  Age: 63 Year
  Sex: Male
  Weight: 57.8 kg

DRUGS (2)
  1. EDOXABAN TOSYLATE [Suspect]
     Active Substance: EDOXABAN TOSYLATE
     Indication: Atrial fibrillation
     Dosage: 60 MG, QD
     Route: 048
     Dates: start: 20241029
  2. ENTRESTO [Concomitant]
     Active Substance: SACUBITRIL\VALSARTAN
     Indication: Hypertension
     Dosage: 50 MG, BID
     Route: 048

REACTIONS (2)
  - Cerebral artery occlusion [Recovering/Resolving]
  - Brain oedema [Unknown]

NARRATIVE: CASE EVENT DATE: 20240101
